FAERS Safety Report 6907830-2 (Version None)
Quarter: 2010Q3

REPORT INFORMATION
  Report Type: 
  Country: None (occurrence: None)
  Receive Date: 20100805
  Receipt Date: 20100728
  Transmission Date: 20110219
  Serious: Yes (Death, Life-Threatening, Other)
  Sender: FDA-Public Use
  Company Number: NL-TEVA-236272ISR

PATIENT
  Sex: Male
  Weight: 70 kg

DRUGS (2)
  1. MORPHINE [Suspect]
     Indication: CARDIAC FAILURE ACUTE
     Route: 058
     Dates: start: 20081118, end: 20081123
  2. DIAZEPAM [Concomitant]
     Dates: end: 20081123

REACTIONS (2)
  - COMA [None]
  - DYSPNOEA [None]
